FAERS Safety Report 9353804 (Version 1)
Quarter: 2013Q2

REPORT INFORMATION
  Report Type: Spontaneous
  Country: BR (occurrence: BR)
  Receive Date: 20130618
  Receipt Date: 20130618
  Transmission Date: 20140414
  Serious: Yes (Hospitalization)
  Sender: FDA-Public Use
  Company Number: BR-ASTRAZENECA-2013SE42064

PATIENT
  Age: 24896 Day
  Sex: Male
  Weight: 72 kg

DRUGS (6)
  1. CRESTOR [Suspect]
     Route: 048
     Dates: start: 201212, end: 201212
  2. DIOVAN [Concomitant]
     Dates: start: 201212
  3. GALVUS [Concomitant]
     Dates: start: 201212
  4. CONCOR [Concomitant]
     Dates: start: 201212
  5. SIMVASTATIN [Concomitant]
     Dates: start: 201212
  6. ASA [Concomitant]
     Dates: start: 201212

REACTIONS (1)
  - Myocardial infarction [Recovered/Resolved]
